FAERS Safety Report 19214323 (Version 1)
Quarter: 2021Q2

REPORT INFORMATION
  Report Type: Spontaneous
  Country: US (occurrence: US)
  Receive Date: 20210504
  Receipt Date: 20210504
  Transmission Date: 20210717
  Serious: No
  Sender: FDA-Public Use
  Company Number: US-ROCHE-2620698

PATIENT
  Sex: Female

DRUGS (1)
  1. AVASTIN [Suspect]
     Active Substance: BEVACIZUMAB
     Indication: GASTROINTESTINAL ANGIODYSPLASIA
     Dosage: X 3 DOSES FOLLOWED BY ONCE MONTHLY
     Route: 042
     Dates: start: 20200528

REACTIONS (5)
  - No adverse event [Unknown]
  - Product dose omission issue [Unknown]
  - Intentional product use issue [Unknown]
  - Product storage error [Unknown]
  - Off label use [Unknown]
